FAERS Safety Report 23139911 (Version 1)
Quarter: 2023Q4

REPORT INFORMATION
  Report Type: Spontaneous
  Country: FR (occurrence: FR)
  Receive Date: 20231102
  Receipt Date: 20231102
  Transmission Date: 20240110
  Serious: Yes (Other)
  Sender: FDA-Public Use
  Company Number: None

PATIENT
  Age: 77 Year
  Sex: Male
  Weight: 79 kg

DRUGS (12)
  1. ALPRAZOLAM [Suspect]
     Active Substance: ALPRAZOLAM
     Indication: Mixed anxiety and depressive disorder
     Dosage: 0.5 MG, QD
     Route: 048
  2. ALKERAN [Suspect]
     Active Substance: MELPHALAN
     Indication: Plasma cell myeloma
     Dosage: UNK (INCONNUE)
     Route: 048
     Dates: start: 2013, end: 2013
  3. CYPROTERONE ACETATE [Suspect]
     Active Substance: CYPROTERONE ACETATE
     Indication: Prostate cancer
     Dosage: 200 MG, QD
     Route: 048
     Dates: start: 2007, end: 20181116
  4. CALCIUM\CHOLECALCIFEROL [Suspect]
     Active Substance: CALCIUM\CHOLECALCIFEROL
     Indication: Calcium deficiency
     Dosage: 1 DOSAGE FORM, QD (ORAL POWDER IN SACHET)
     Route: 048
  5. CLODRONATE DISODIUM [Suspect]
     Active Substance: CLODRONATE DISODIUM
     Indication: Hypercalcaemia of malignancy
     Dosage: UNK
     Route: 048
  6. DEXAMETHASONE ACETATE [Suspect]
     Active Substance: DEXAMETHASONE ACETATE
     Indication: Plasma cell myeloma
     Dosage: UNK
     Route: 048
  7. DEXAMETHASONE ACETATE [Suspect]
     Active Substance: DEXAMETHASONE ACETATE
     Dosage: UNK (INCONNUE)
     Route: 048
  8. PREDNISONE [Suspect]
     Active Substance: PREDNISONE
     Indication: Plasma cell myeloma
     Dosage: UNK (INCONNUE)
     Route: 048
     Dates: start: 2013, end: 2013
  9. REVLIMID [Suspect]
     Active Substance: LENALIDOMIDE
     Indication: Plasma cell myeloma
     Dosage: 21 DOSAGE FORM, 28D
     Route: 048
     Dates: start: 201503
  10. RISPERDAL [Suspect]
     Active Substance: RISPERIDONE
     Indication: Mixed anxiety and depressive disorder
     Dosage: 0.25 MG, QD
     Route: 048
  11. SERTRALINE [Suspect]
     Active Substance: SERTRALINE HYDROCHLORIDE
     Indication: Mixed anxiety and depressive disorder
     Dosage: 100 MG, QD
     Route: 048
  12. VELCADE [Suspect]
     Active Substance: BORTEZOMIB
     Indication: Plasma cell myeloma
     Dosage: UNK (INCONNUE)
     Route: 058
     Dates: start: 2013, end: 2013

REACTIONS (1)
  - Meningioma [Not Recovered/Not Resolved]

NARRATIVE: CASE EVENT DATE: 20171219
